FAERS Safety Report 19912481 (Version 2)
Quarter: 2021Q4

REPORT INFORMATION
  Report Type: Spontaneous
  Country: US (occurrence: US)
  Receive Date: 20211004
  Receipt Date: 20211026
  Transmission Date: 20220304
  Serious: No
  Sender: FDA-Public Use
  Company Number: 2021A733788

PATIENT
  Sex: Male
  Weight: 50.8 kg

DRUGS (1)
  1. SYMBICORT [Suspect]
     Active Substance: BUDESONIDE\FORMOTEROL FUMARATE DIHYDRATE
     Indication: Chronic obstructive pulmonary disease
     Dosage: 160/4.5 UG 2 PUFFS
     Route: 055

REACTIONS (3)
  - Weight decreased [Unknown]
  - Stress [Unknown]
  - Device issue [Unknown]

NARRATIVE: CASE EVENT DATE: 20210101
